FAERS Safety Report 22109914 (Version 1)
Quarter: 2023Q1

REPORT INFORMATION
  Report Type: Spontaneous
  Country: US (occurrence: US)
  Receive Date: 20230317
  Receipt Date: 20230317
  Transmission Date: 20230418
  Serious: No
  Sender: FDA-Public Use
  Company Number: US-TORRENT-00012566

PATIENT
  Sex: Female

DRUGS (1)
  1. PANTOPRAZOLE SODIUM [Suspect]
     Active Substance: PANTOPRAZOLE SODIUM
     Indication: Product used for unknown indication
     Dosage: UNKNOWN
     Route: 065

REACTIONS (15)
  - Dizziness [Unknown]
  - Heart rate irregular [Unknown]
  - Feeling jittery [Unknown]
  - Myalgia [Unknown]
  - Asthenia [Unknown]
  - Muscle spasms [Unknown]
  - Laryngospasm [Unknown]
  - Vitamin D decreased [Unknown]
  - Rash [Unknown]
  - Pain [Unknown]
  - Dyspnoea [Unknown]
  - Arthralgia [Unknown]
  - Upper respiratory tract infection [Unknown]
  - Headache [Unknown]
  - Condition aggravated [Unknown]
